FAERS Safety Report 7901926-4 (Version None)
Quarter: 2011Q4

REPORT INFORMATION
  Report Type: 
  Country: None (occurrence: None)
  Receive Date: 20111108
  Receipt Date: 20111102
  Transmission Date: 20120403
  Serious: Yes (Death)
  Sender: FDA-Public Use
  Company Number: US-GLAXOSMITHKLINE-A0689947A

PATIENT
  Age: 63 Year
  Sex: Female
  Weight: 63.6 kg

DRUGS (3)
  1. COMMIT [Suspect]
     Indication: MULTIPLE SCLEROSIS
     Route: 002
  2. HOT WATER [Suspect]
     Indication: MULTIPLE SCLEROSIS
     Route: 050
  3. COLLOIDAL SILVER [Suspect]
     Indication: MULTIPLE SCLEROSIS

REACTIONS (3)
  - MULTIPLE SCLEROSIS RELAPSE [None]
  - DROWNING [None]
  - ASTHENIA [None]
